FAERS Safety Report 7512267-1 (Version None)
Quarter: 2011Q2

REPORT INFORMATION
  Report Type: 
  Country: None (occurrence: None)
  Receive Date: 20110531
  Receipt Date: 20110517
  Transmission Date: 20111010
  Serious: Yes (Other)
  Sender: FDA-Public Use
  Company Number: PHHY2011US38062

PATIENT
  Sex: Female

DRUGS (3)
  1. RECLAST [Suspect]
     Route: 042
     Dates: start: 20100101
  2. ANTIHYPERTENSIVES [Concomitant]
  3. RECLAST [Suspect]
     Route: 042
     Dates: start: 20090101

REACTIONS (3)
  - NEOPLASM MALIGNANT [None]
  - WHITE BLOOD CELL COUNT INCREASED [None]
  - CHRONIC LYMPHOCYTIC LEUKAEMIA [None]
